FAERS Safety Report 4503951-2 (Version None)
Quarter: 2004Q3

REPORT INFORMATION
  Report Type: 
  Country: None (occurrence: None)
  Receive Date: 20040927
  Receipt Date: 20040720
  Transmission Date: 20050211
  Serious: No
  Sender: FDA-Public Use
  Company Number: USA040773149

PATIENT
  Age: 9 Year
  Sex: Male
  Weight: 59 kg

DRUGS (1)
  1. STRATTERA [Suspect]
     Indication: ATTENTION DEFICIT/HYPERACTIVITY DISORDER
     Dosage: 80 MG DAY
     Dates: start: 20030627, end: 20040707

REACTIONS (5)
  - ABNORMAL BEHAVIOUR [None]
  - AGGRESSION [None]
  - ATTENTION DEFICIT/HYPERACTIVITY DISORDER [None]
  - DRUG INEFFECTIVE [None]
  - WEIGHT INCREASED [None]
